FAERS Safety Report 23022024 (Version 1)
Quarter: 2023Q4

REPORT INFORMATION
  Report Type: Spontaneous
  Country: RU (occurrence: None)
  Receive Date: 20231003
  Receipt Date: 20231003
  Transmission Date: 20240110
  Serious: Yes (Other)
  Sender: FDA-Public Use
  Company Number: 2023A222654

PATIENT
  Age: 732 Month
  Sex: Male
  Weight: 81 kg

DRUGS (2)
  1. IMFINZI [Suspect]
     Active Substance: DURVALUMAB
     Indication: Immunochemotherapy
     Route: 042
     Dates: start: 20230725
  2. IMFINZI [Suspect]
     Active Substance: DURVALUMAB
     Indication: Immunochemotherapy
     Route: 042
     Dates: start: 20230829

REACTIONS (3)
  - Dyspnoea [Recovering/Resolving]
  - Muscular weakness [Recovering/Resolving]
  - Oedema mucosal [Recovering/Resolving]

NARRATIVE: CASE EVENT DATE: 20230801
